FAERS Safety Report 7568833-0 (Version None)
Quarter: 2011Q2

REPORT INFORMATION
  Report Type: 
  Country: None (occurrence: None)
  Receive Date: 20110623
  Receipt Date: 20110613
  Transmission Date: 20111010
  Serious: Yes (Other)
  Sender: FDA-Public Use
  Company Number: US-JNJFOC-20110607152

PATIENT
  Age: 20 Year
  Sex: Female

DRUGS (2)
  1. STELARA [Suspect]
     Indication: PSORIASIS
     Route: 058
     Dates: start: 20100701, end: 20110201
  2. ENBREL [Suspect]
     Indication: PSORIASIS
     Dates: start: 20110101

REACTIONS (1)
  - HODGKIN'S DISEASE [None]
